FAERS Safety Report 7184599-0 (Version None)
Quarter: 2010Q4

REPORT INFORMATION
  Report Type: 
  Country: None (occurrence: None)
  Receive Date: 20101222
  Receipt Date: 20101220
  Transmission Date: 20110411
  Serious: Yes (Hospitalization)
  Sender: FDA-Public Use
  Company Number: US-PFIZER INC-2010176391

PATIENT
  Age: 28 Year
  Sex: Female

DRUGS (3)
  1. ARGATROBAN [Suspect]
     Indication: VENOUS THROMBOSIS
     Dosage: 3.5 + 1 UG/KG/MIN
     Route: 042
     Dates: start: 20101213
  2. ARGATROBAN [Suspect]
     Indication: HEPARIN-INDUCED THROMBOCYTOPENIA
  3. PEPCID [Concomitant]

REACTIONS (1)
  - LIVER FUNCTION TEST ABNORMAL [None]
